FAERS Safety Report 9038960 (Version 1)
Quarter: 2013Q1

REPORT INFORMATION
  Report Type: Spontaneous
  Country: US (occurrence: US)
  Receive Date: 20130129
  Receipt Date: 20130129
  Transmission Date: 20140127
  Serious: No
  Sender: FDA-Public Use
  Company Number: US-BAYER-2013-008707

PATIENT
  Age: 75 Year
  Sex: Male
  Weight: 77.55 kg

DRUGS (3)
  1. ALEVE CAPLET/TABLET,MIDOL EXTENDED RELIEF CAPLET [Suspect]
     Indication: ARTHRITIS
     Dosage: 2 DF, QD
     Route: 048
     Dates: start: 20130104, end: 20130106
  2. FISH OIL [Concomitant]
  3. CENTRUM SILVER [Concomitant]

REACTIONS (1)
  - Drug ineffective [None]
